FAERS Safety Report 7382656-7 (Version None)
Quarter: 2011Q1

REPORT INFORMATION
  Report Type: 
  Country: None (occurrence: None)
  Receive Date: 20110329
  Receipt Date: 20110323
  Transmission Date: 20110831
  Serious: Yes (Other)
  Sender: FDA-Public Use
  Company Number: US-BAYER-2011-026269

PATIENT
  Sex: Female

DRUGS (4)
  1. YAZ [Suspect]
     Dosage: UNK
  2. OCELLA [Suspect]
     Dosage: UNK
     Dates: start: 20090901, end: 20100401
  3. YAZ [Suspect]
     Dosage: UNK
     Dates: start: 20090101, end: 20090401
  4. YASMIN [Suspect]
     Dosage: UNK
     Dates: start: 20060101, end: 20070901

REACTIONS (2)
  - CHOLECYSTITIS CHRONIC [None]
  - GALLBLADDER CHOLESTEROLOSIS [None]
